FAERS Safety Report 19487992 (Version 2)
Quarter: 2021Q4

REPORT INFORMATION
  Report Type: Spontaneous
  Country: FR (occurrence: FR)
  Receive Date: 20210702
  Receipt Date: 20211126
  Transmission Date: 20220303
  Serious: Yes (Other)
  Sender: FDA-Public Use
  Company Number: FR-ELI_LILLY_AND_COMPANY-FR202106013564

PATIENT
  Age: 57 Year
  Sex: Male

DRUGS (2)
  1. OLUMIANT [Suspect]
     Active Substance: BARICITINIB
     Indication: Product used for unknown indication
     Dosage: UNK, UNKNOWN
     Route: 065
     Dates: start: 20180612
  2. OLUMIANT [Suspect]
     Active Substance: BARICITINIB
     Dosage: UNK
     Route: 065
     Dates: start: 20190120

REACTIONS (1)
  - Pneumonia legionella [Recovered/Resolved]

NARRATIVE: CASE EVENT DATE: 20180915
